FAERS Safety Report 5995465-8 (Version None)
Quarter: 2008Q4

REPORT INFORMATION
  Report Type: 
  Country: None (occurrence: None)
  Receive Date: 20081212
  Receipt Date: 20080923
  Transmission Date: 20090506
  Serious: No
  Sender: FDA-Public Use
  Company Number: US-ABBOTT-08P-163-0478961-00

PATIENT
  Sex: Female
  Weight: 53.572 kg

DRUGS (2)
  1. HUMIRA [Suspect]
     Indication: RHEUMATOID ARTHRITIS
     Dates: start: 20070901, end: 20071101
  2. HUMIRA [Suspect]
     Dates: start: 20080901

REACTIONS (1)
  - ACCIDENTAL EXPOSURE [None]
